FAERS Safety Report 5164015-0 (Version None)
Quarter: 2006Q4

REPORT INFORMATION
  Report Type: 
  Country: None (occurrence: None)
  Receive Date: 20061204
  Receipt Date: 20061128
  Transmission Date: 20070319
  Serious: Yes (Hospitalization)
  Sender: FDA-Public Use
  Company Number: AU-BOEHRINGER INGELHEIM PHARMACEUTICALS, INC.-2006-BP-13827AU

PATIENT
  Age: 71 Year
  Sex: Female

DRUGS (3)
  1. MOBIC [Suspect]
     Indication: ARTHRITIS
     Route: 048
     Dates: end: 20060109
  2. AVAPRO [Suspect]
     Indication: ESSENTIAL HYPERTENSION
     Route: 048
     Dates: end: 20060109
  3. LASIX [Suspect]
     Indication: ESSENTIAL HYPERTENSION
     Route: 048

REACTIONS (3)
  - DIALYSIS [None]
  - HYPOVOLAEMIA [None]
  - RENAL FAILURE ACUTE [None]
